FAERS Safety Report 14199536 (Version 3)
Quarter: 2018Q1

REPORT INFORMATION
  Report Type: Spontaneous
  Country: JP (occurrence: JP)
  Receive Date: 20171117
  Receipt Date: 20180201
  Transmission Date: 20180508
  Serious: Yes (Hospitalization, Other)
  Sender: FDA-Public Use
  Company Number: JP-GLAXOSMITHKLINE-JP2017JPN174964

PATIENT
  Age: 85 Year
  Sex: Male
  Weight: 60 kg

DRUGS (1)
  1. AVOLVE [Suspect]
     Active Substance: DUTASTERIDE
     Dosage: UNK
     Route: 048
     Dates: start: 2011

REACTIONS (3)
  - Depressed level of consciousness [Recovering/Resolving]
  - Dyspnoea [Recovering/Resolving]
  - Cardiac failure [Recovering/Resolving]

NARRATIVE: CASE EVENT DATE: 20171111
